FAERS Safety Report 18140357 (Version 1)
Quarter: 2020Q3

REPORT INFORMATION
  Report Type: Spontaneous
  Country: US (occurrence: US)
  Receive Date: 20200812
  Receipt Date: 20200812
  Transmission Date: 20201103
  Serious: No
  Sender: FDA-Public Use
  Company Number: None

PATIENT
  Age: 71 Year
  Sex: Female
  Weight: 67 kg

DRUGS (11)
  1. EXEMESTANE. [Concomitant]
     Active Substance: EXEMESTANE
  2. CALCIUM [Concomitant]
     Active Substance: CALCIUM
  3. TYLENOL [Concomitant]
     Active Substance: ACETAMINOPHEN
  4. KLOR?CON M10 [Concomitant]
     Active Substance: POTASSIUM CHLORIDE
  5. CAPECITABINE. [Suspect]
     Active Substance: CAPECITABINE
     Indication: BREAST CANCER
     Route: 048
     Dates: start: 20191111, end: 20200812
  6. TURMERIC [Concomitant]
     Active Substance: HERBALS\TURMERIC
  7. CLARITIN [Concomitant]
     Active Substance: LORATADINE
  8. TYKERB [Suspect]
     Active Substance: LAPATINIB DITOSYLATE
     Indication: BREAST CANCER
     Route: 048
     Dates: start: 20191111, end: 20200812
  9. FLORASTOR [Concomitant]
     Active Substance: SACCHAROMYCES CEREVISIAE
  10. POTASSIUM [Concomitant]
     Active Substance: POTASSIUM
  11. MAGNESIUM [Concomitant]
     Active Substance: MAGNESIUM

REACTIONS (3)
  - Malaise [None]
  - Pain in extremity [None]
  - Inflammation [None]

NARRATIVE: CASE EVENT DATE: 20200812
